FAERS Safety Report 11031724 (Version 2)
Quarter: 2015Q2

REPORT INFORMATION
  Report Type: Spontaneous
  Country: JP (occurrence: JP)
  Receive Date: 20150415
  Receipt Date: 20150520
  Transmission Date: 20150821
  Serious: Yes (Death)
  Sender: FDA-Public Use
  Company Number: JP-PFIZER INC-2015126809

PATIENT
  Age: 49 Year
  Sex: Female

DRUGS (1)
  1. ZYVOX [Suspect]
     Active Substance: LINEZOLID
     Indication: STAPHYLOCOCCAL SEPSIS
     Dosage: 1200 MG, DAILY
     Route: 041
     Dates: start: 20130405, end: 20130409

REACTIONS (2)
  - Diabetes mellitus [Fatal]
  - Renal failure [Fatal]

NARRATIVE: CASE EVENT DATE: 201304
